FAERS Safety Report 20361246 (Version 2)
Quarter: 2022Q1

REPORT INFORMATION
  Report Type: Spontaneous
  Country: GB (occurrence: GB)
  Receive Date: 20220121
  Receipt Date: 20220210
  Transmission Date: 20220423
  Serious: Yes (Hospitalization)
  Sender: FDA-Public Use
  Company Number: GB-MYLANLABS-2022M1004020

PATIENT
  Sex: Male

DRUGS (1)
  1. CLOZARIL [Suspect]
     Active Substance: CLOZAPINE
     Indication: Schizophrenia
     Dosage: UNK
     Route: 048
     Dates: start: 20040614, end: 20220202

REACTIONS (7)
  - Dehydration [Unknown]
  - Acute kidney injury [Unknown]
  - Vomiting [Unknown]
  - Sepsis [Unknown]
  - Diarrhoea [Unknown]
  - Treatment noncompliance [Unknown]
  - Mental disorder [Unknown]
